FAERS Safety Report 7952439-5 (Version None)
Quarter: 2011Q4

REPORT INFORMATION
  Report Type: 
  Country: None (occurrence: None)
  Receive Date: 20111201
  Receipt Date: 20111129
  Transmission Date: 20120403
  Serious: Yes (Other)
  Sender: FDA-Public Use
  Company Number: GB-GLAXOSMITHKLINE-B0764350A

PATIENT
  Sex: Male

DRUGS (7)
  1. FLUTICASONE PROPIONATE [Concomitant]
  2. REQUIP [Suspect]
     Indication: PARKINSON'S DISEASE
     Dosage: 3MG THREE TIMES PER DAY
     Route: 048
     Dates: start: 20110901
  3. ADALIMUMAB [Concomitant]
  4. ATORVASTATIN [Concomitant]
  5. CETIRIZINE HCL [Concomitant]
  6. RANITIDINE [Concomitant]
  7. METHOTREXATE [Concomitant]

REACTIONS (6)
  - TREMOR [None]
  - MOVEMENT DISORDER [None]
  - DRUG LEVEL FLUCTUATING [None]
  - DYSPHONIA [None]
  - PARKINSON'S DISEASE [None]
  - DRUG INEFFECTIVE [None]
